FAERS Safety Report 9163638 (Version 1)
Quarter: 2013Q1

REPORT INFORMATION
  Report Type: Spontaneous
  Country: FR (occurrence: FR)
  Receive Date: 20130314
  Receipt Date: 20130314
  Transmission Date: 20140127
  Serious: Yes (Disabling)
  Sender: FDA-Public Use
  Company Number: FR-ROCHE-1197846

PATIENT
  Age: 45 Year
  Sex: Male
  Weight: 67 kg

DRUGS (14)
  1. PEGASYS [Suspect]
     Indication: HEPATITIS C
     Route: 058
     Dates: start: 2002, end: 200709
  2. PEGASYS [Suspect]
     Route: 058
     Dates: start: 200709, end: 20080317
  3. PEGASYS [Suspect]
     Route: 065
     Dates: start: 201003, end: 201109
  4. RIBAVIRIN [Suspect]
     Indication: HEPATITIS C
     Route: 065
     Dates: start: 2002, end: 200709
  5. RIBAVIRIN [Suspect]
     Route: 065
     Dates: start: 200709
  6. PREVISCAN [Concomitant]
     Route: 065
  7. INIPOMP [Concomitant]
     Route: 065
  8. LYRICA [Concomitant]
     Route: 065
  9. LYRICA [Concomitant]
     Route: 065
  10. REVATIO [Concomitant]
     Dosage: 1 TAB 3 TIMES A DAY
     Route: 065
  11. DAFALGAN [Concomitant]
  12. AMBRISENTAN [Concomitant]
     Route: 065
  13. LASILIX [Concomitant]
     Route: 065
  14. ALDACTONE [Concomitant]

REACTIONS (1)
  - Pulmonary arterial hypertension [Not Recovered/Not Resolved]
